FAERS Safety Report 6895018-3 (Version None)
Quarter: 2010Q3

REPORT INFORMATION
  Report Type: 
  Country: None (occurrence: None)
  Receive Date: 20100727
  Receipt Date: 20100708
  Transmission Date: 20110219
  Serious: Yes (Other)
  Sender: FDA-Public Use
  Company Number: DSA_43523_2010

PATIENT
  Age: 64 Year
  Sex: Male

DRUGS (1)
  1. BUPROPION HYDROCHLORIDE [Suspect]
     Indication: OBESITY
     Dosage: (150 MG QD ORAL)
     Route: 048
     Dates: start: 20100429, end: 20100519

REACTIONS (3)
  - MACROGLOSSIA [None]
  - PALATAL OEDEMA [None]
  - RESPIRATORY DISTRESS [None]
